FAERS Safety Report 10383238 (Version 3)
Quarter: 2014Q3

REPORT INFORMATION
  Report Type: Spontaneous
  Country: VN (occurrence: VN)
  Receive Date: 20140814
  Receipt Date: 20140821
  Transmission Date: 20150326
  Serious: Yes (Other)
  Sender: FDA-Public Use
  Company Number: VN-ROCHE-1435959

PATIENT
  Sex: Female

DRUGS (1)
  1. MIRCERA [Suspect]
     Active Substance: PEGZEREPOETIN ALFA
     Indication: NEPHROGENIC ANAEMIA
     Route: 058
     Dates: end: 20140718

REACTIONS (2)
  - Abortion spontaneous [Unknown]
  - Maternal exposure during pregnancy [Unknown]
